FAERS Safety Report 13211088 (Version 1)
Quarter: 2017Q1

REPORT INFORMATION
  Report Type: Spontaneous
  Country: US (occurrence: US)
  Receive Date: 20170210
  Receipt Date: 20170210
  Transmission Date: 20170428
  Serious: Yes (Disabling, Other)
  Sender: FDA-Public Use
  Company Number: None

PATIENT
  Age: 37 Year
  Sex: Female
  Weight: 90 kg

DRUGS (2)
  1. ELIDEL [Suspect]
     Active Substance: PIMECROLIMUS
     Indication: SKIN DISORDER
     Route: 062
  2. CLOBEASOL OINTMENT [Concomitant]

REACTIONS (9)
  - Skin disorder [None]
  - Skin discolouration [None]
  - Dyspnoea [None]
  - Crohn^s disease [None]
  - Pain in extremity [None]
  - Inflammation [None]
  - Hypoaesthesia [None]
  - Arthritis [None]
  - Condition aggravated [None]

NARRATIVE: CASE EVENT DATE: 20170210
